FAERS Safety Report 4608627-9 (Version None)
Quarter: 2005Q1

REPORT INFORMATION
  Report Type: 
  Country: None (occurrence: None)
  Receive Date: 20050311
  Receipt Date: 20050311
  Transmission Date: 20050727
  Serious: Yes (Death)
  Sender: FDA-Public Use
  Company Number: None

PATIENT
  Age: 32 Year
  Sex: Female
  Weight: 71 kg

DRUGS (2)
  1. PROPOFOL [Suspect]
     Indication: INTRACRANIAL PRESSURE INCREASED
     Dosage: 190 MCG/KG/M   CONTINUOUS  INTRAVENOUS
     Route: 042
     Dates: start: 20050223, end: 20050228
  2. PROPOFOL [Suspect]
     Indication: SEDATION
     Dosage: 190 MCG/KG/M   CONTINUOUS  INTRAVENOUS
     Route: 042
     Dates: start: 20050223, end: 20050228

REACTIONS (9)
  - ATRIOVENTRICULAR BLOCK [None]
  - CARDIAC FAILURE [None]
  - HYPERKALAEMIA [None]
  - HYPERTRIGLYCERIDAEMIA [None]
  - METABOLIC ACIDOSIS [None]
  - PERIPHERAL ISCHAEMIA [None]
  - PROCEDURAL COMPLICATION [None]
  - RHABDOMYOLYSIS [None]
  - VENTRICULAR ARRHYTHMIA [None]
